FAERS Safety Report 15156841 (Version 2)
Quarter: 2018Q3

REPORT INFORMATION
  Report Type: Report from Study
  Country: IT (occurrence: IT)
  Receive Date: 20180718
  Receipt Date: 20180926
  Transmission Date: 20181010
  Serious: Yes (Other)
  Sender: FDA-Public Use
  Company Number: IT-TEVA-2018-IT-926894

PATIENT
  Age: 73 Year
  Sex: Female

DRUGS (9)
  1. DIAMICRON 30 MG COMPRESSE A RILASCIO MODIFICATO [Concomitant]
     Route: 065
  2. NEBIVOLOL. [Concomitant]
     Active Substance: NEBIVOLOL
     Route: 065
  3. PARIET [Concomitant]
     Active Substance: RABEPRAZOLE SODIUM
     Route: 065
  4. PACLITAXEL. [Suspect]
     Active Substance: PACLITAXEL
     Indication: BREAST CANCER
     Route: 042
     Dates: start: 20171215, end: 20180607
  5. ARIXTRA 7.5 MG/0.6?ML SOLUTION FOR INJECTION, PRE?FILLED SYRINGE [Concomitant]
     Route: 065
  6. EUTIROX 125 MICROGRAMMI COMPRESSE [Concomitant]
     Route: 065
  7. CREON 10000 U.PH.EUR. CAPSULE RIGIDE A RILASCIO MODIFICATO [Concomitant]
  8. METFORMIN [Concomitant]
     Active Substance: METFORMIN HYDROCHLORIDE
     Route: 065
  9. TRASTUZUMAB. [Concomitant]
     Active Substance: TRASTUZUMAB
     Route: 065

REACTIONS (1)
  - Nail disorder [Unknown]

NARRATIVE: CASE EVENT DATE: 20180614
